FAERS Safety Report 4958816-9 (Version None)
Quarter: 2006Q1

REPORT INFORMATION
  Report Type: 
  Country: None (occurrence: None)
  Receive Date: 20060324
  Receipt Date: 20060315
  Transmission Date: 20060701
  Serious: Yes (Disabling)
  Sender: FDA-Public Use
  Company Number: 2006-03-0909

PATIENT
  Age: 65 Year
  Sex: Female
  Weight: 55 kg

DRUGS (5)
  1. VIRAFERONPEG [Suspect]
     Indication: B-CELL LYMPHOMA
     Dosage: INTRAMUSCULAR
     Route: 030
     Dates: start: 20040615, end: 20050115
  2. VINCRISTINE [Concomitant]
  3. CYCLOPHOSPHAMIDE [Concomitant]
  4. PREDNISONE [Concomitant]
  5. MABTHERA (RITUXIMAB) [Concomitant]

REACTIONS (2)
  - OPTIC ISCHAEMIC NEUROPATHY [None]
  - OPTIC NEURITIS [None]
